FAERS Safety Report 24848178 (Version 1)
Quarter: 2025Q1

REPORT INFORMATION
  Report Type: Spontaneous
  Country: US (occurrence: US)
  Receive Date: 20250116
  Receipt Date: 20250116
  Transmission Date: 20250408
  Serious: Yes (Other)
  Sender: DR REDDYS
  Company Number: US-DRL-USA-USA/2025/01/000517

PATIENT
  Age: 76 Year
  Sex: Female

DRUGS (3)
  1. TOBRAMYCIN [Suspect]
     Active Substance: TOBRAMYCIN
     Indication: Ulcerative keratitis
  2. AMPHOTERICIN B [Suspect]
     Active Substance: AMPHOTERICIN B
     Indication: Ulcerative keratitis
     Dosage: HOURLY FORTIFIED AMPHOTERICIN, TOBRAMYCIN, AND VANCOMYCIN
  3. VANCOMYCIN [Suspect]
     Active Substance: VANCOMYCIN
     Indication: Ulcerative keratitis
     Dosage: HOURLY FORTIFIED AMPHOTERICIN, TOBRAMYCIN, AND VANCOMYCIN

REACTIONS (4)
  - Periorbital cellulitis [Unknown]
  - Fusarium infection [Unknown]
  - Pain [Recovered/Resolved]
  - Drug ineffective for unapproved indication [Unknown]
